FAERS Safety Report 8591124-6 (Version None)
Quarter: 2012Q3

REPORT INFORMATION
  Report Type: 
  Country: None (occurrence: None)
  Receive Date: 20120813
  Receipt Date: 20120809
  Transmission Date: 20120928
  Serious: No
  Sender: FDA-Public Use
  Company Number: US-PFIZER INC-2012195241

PATIENT
  Age: 44 Year
  Sex: Female
  Weight: 90.703 kg

DRUGS (1)
  1. IBUPROFEN [Suspect]
     Indication: HEADACHE
     Dosage: 800 MG, AS NEEDED
     Dates: start: 19980101

REACTIONS (3)
  - HEADACHE [None]
  - THYROID DISORDER [None]
  - BACK PAIN [None]
